FAERS Safety Report 23977390 (Version 2)
Quarter: 2024Q4

REPORT INFORMATION
  Report Type: Spontaneous
  Country: JP (occurrence: JP)
  Receive Date: 20240614
  Receipt Date: 20241031
  Transmission Date: 20250115
  Serious: Yes (Other)
  Sender: ALEXION PHARMACEUTICALS
  Company Number: 2024A135184

PATIENT
  Age: 70 Year

DRUGS (1)
  1. DAPAGLIFLOZIN [Suspect]
     Active Substance: DAPAGLIFLOZIN
     Indication: Chronic kidney disease
     Dosage: 10 MILLIGRAM, QD

REACTIONS (4)
  - Tubulointerstitial nephritis [Unknown]
  - Drug-induced liver injury [Recovered/Resolved]
  - Renal disorder [Recovered/Resolved]
  - Aortitis [Unknown]
